FAERS Safety Report 13440169 (Version 1)
Quarter: 2017Q2

REPORT INFORMATION
  Report Type: Spontaneous
  Country: US (occurrence: US)
  Receive Date: 20170413
  Receipt Date: 20170413
  Transmission Date: 20170830
  Serious: No
  Sender: FDA-Public Use
  Company Number: US-B.I. PHARMACEUTICALS,INC./RIDGEFIELD-2017-BI-020769

PATIENT
  Sex: Female

DRUGS (1)
  1. ZANTAC [Suspect]
     Active Substance: RANITIDINE HYDROCHLORIDE
     Indication: PRODUCT USED FOR UNKNOWN INDICATION
     Dosage: FORM STRENGTH: 75 MG; FORMULATION: TABLET? ADMINISTRATION CORRECT? NR(NOT REPORTED) ?ACTION(S) TAKEN
     Route: 065
     Dates: start: 2017

REACTIONS (4)
  - Wheezing [Unknown]
  - Dysgeusia [Unknown]
  - Product taste abnormal [Unknown]
  - Flatulence [Unknown]
